FAERS Safety Report 8605266-X (Version None)
Quarter: 2012Q3

REPORT INFORMATION
  Report Type: 
  Country: None (occurrence: None)
  Receive Date: 20120820
  Receipt Date: 20120810
  Transmission Date: 20120928
  Serious: Yes (Hospitalization, Other)
  Sender: FDA-Public Use
  Company Number: US-ABBOTT-12P-163-0967803-00

PATIENT
  Sex: Female
  Weight: 129.39 kg

DRUGS (7)
  1. ASPIRIN [Concomitant]
     Dates: start: 20120713
  2. HUMIRA [Suspect]
     Indication: ANKYLOSING SPONDYLITIS
     Route: 058
     Dates: start: 20100101, end: 20120201
  3. HUMIRA [Suspect]
     Indication: PSORIASIS
  4. NEURONTIN [Suspect]
     Indication: NEUROPATHY PERIPHERAL
     Dosage: MANUFACTURED BY NORTHSTAR RX
     Dates: end: 20120601
  5. NEURONTIN [Suspect]
     Dates: start: 20120601
  6. HUMIRA [Suspect]
     Indication: PSORIATIC ARTHROPATHY
     Route: 058
     Dates: start: 20120201, end: 20120601
  7. ASPIRIN [Concomitant]
     Indication: PRODUCT USED FOR UNKNOWN INDICATION
     Dates: end: 20120713

REACTIONS (11)
  - AMNESIA [None]
  - DYSPNOEA [None]
  - ATRIAL FIBRILLATION [None]
  - SLEEP APNOEA SYNDROME [None]
  - PNEUMONIA [None]
  - WHEEZING [None]
  - DYSKINESIA [None]
  - THINKING ABNORMAL [None]
  - MENTAL DISORDER [None]
  - ARTERIOSCLEROSIS [None]
  - RENAL FAILURE [None]
